FAERS Safety Report 23109796 (Version 1)
Quarter: 2023Q4

REPORT INFORMATION
  Report Type: Spontaneous
  Country: JP (occurrence: JP)
  Receive Date: 20231026
  Receipt Date: 20231026
  Transmission Date: 20240110
  Serious: Yes (Death)
  Sender: FDA-Public Use
  Company Number: JP-PFIZER INC-PV202300175122

PATIENT
  Age: 70 Year
  Sex: Female

DRUGS (3)
  1. VORICONAZOLE [Suspect]
     Active Substance: VORICONAZOLE
     Indication: Fungal infection
     Dosage: UNK
  2. MICAFUNGIN [Concomitant]
     Active Substance: MICAFUNGIN SODIUM
     Indication: Fungal infection
     Dosage: UNK
  3. TERBINAFINE [Concomitant]
     Active Substance: TERBINAFINE
     Indication: Fungal infection
     Dosage: UNK

REACTIONS (1)
  - Drug ineffective [Fatal]
